FAERS Safety Report 7224536-3 (Version None)
Quarter: 2011Q1

REPORT INFORMATION
  Report Type: 
  Country: None (occurrence: None)
  Receive Date: 20110106
  Receipt Date: 20110106
  Transmission Date: 20110831
  Serious: Yes (Hospitalization)
  Sender: FDA-Public Use
  Company Number: None

PATIENT
  Age: 62 Year
  Sex: Female
  Weight: 86.1 kg

DRUGS (5)
  1. VIT A [Concomitant]
  2. FISH OIL [Concomitant]
  3. HYDROCHLOROTHIAZIDE [Concomitant]
  4. GARLIC [Concomitant]
  5. CRESTOR [Suspect]
     Indication: BLOOD CHOLESTEROL INCREASED
     Dosage: PO
     Route: 048

REACTIONS (3)
  - PRURITUS [None]
  - RASH [None]
  - DRUG ERUPTION [None]
